FAERS Safety Report 7352783-9 (Version None)
Quarter: 2011Q1

REPORT INFORMATION
  Report Type: 
  Country: None (occurrence: None)
  Receive Date: 20110302
  Receipt Date: 20100315
  Transmission Date: 20110831
  Serious: Yes (Other)
  Sender: FDA-Public Use
  Company Number: 302523

PATIENT
  Age: 57 Year
  Sex: Male
  Weight: 71.2 kg

DRUGS (3)
  1. NOVOLOG [Suspect]
     Indication: TYPE 1 DIABETES MELLITUS
     Dosage: SLIDING SCALE, SUBCUTANEOUS
     Route: 058
  2. NOVOLIN N [Suspect]
     Indication: TYPE 1 DIABETES MELLITUS
     Dosage: 13.5 IU, QD (5.5 IU AM, 8 IU PM), SUBCUTANEOUS
     Route: 058
  3. ANTIHYPERTENSIVES [Concomitant]

REACTIONS (7)
  - CONTUSION [None]
  - GAIT DISTURBANCE [None]
  - HYPOGLYCAEMIC UNCONSCIOUSNESS [None]
  - LOSS OF CONSCIOUSNESS [None]
  - EYE PAIN [None]
  - BLOOD GLUCOSE INCREASED [None]
  - LACERATION [None]
